FAERS Safety Report 8057260-8 (Version None)
Quarter: 2012Q1

REPORT INFORMATION
  Report Type: 
  Country: None (occurrence: None)
  Receive Date: 20120119
  Receipt Date: 20120113
  Transmission Date: 20120608
  Serious: Yes (Other)
  Sender: FDA-Public Use
  Company Number: PHEH2012US001386

PATIENT
  Sex: Male
  Weight: 34.8 kg

DRUGS (9)
  1. DESFERAL [Concomitant]
     Dosage: 1.7 G, FOR 12 HRS
     Route: 058
  2. FOLIC ACID [Concomitant]
     Dosage: 1 MG, QD
     Route: 048
  3. DESFERAL [Concomitant]
     Dosage: 100 MG/KG, DAILY
     Route: 042
  4. CALCIUM GLUCONATE [Concomitant]
     Dosage: 500 MG, DAILY
     Route: 048
  5. EXJADE [Suspect]
     Indication: IRON OVERLOAD
     Dosage: 1000 MG, DAILY
     Route: 048
  6. VITAMIN E [Concomitant]
     Dosage: 18 MG, DAILY
     Route: 048
  7. EXJADE [Suspect]
     Dosage: 1250 MG, DAILY
     Route: 048
  8. ASCORBIC ACID [Concomitant]
     Dosage: 100 MG, DAILY
     Route: 048
  9. ASCORBIC ACID [Concomitant]
     Dosage: 150 MG, BID
     Route: 048

REACTIONS (13)
  - UROBILINOGEN URINE INCREASED [None]
  - TRANSAMINASES INCREASED [None]
  - BLOOD BILIRUBIN INCREASED [None]
  - ALANINE AMINOTRANSFERASE INCREASED [None]
  - HAEMOGLOBIN DECREASED [None]
  - HEPATITIS C [None]
  - HEPATIC FIBROSIS [None]
  - BLOOD IRON INCREASED [None]
  - SPLEEN PALPABLE [None]
  - CONJUNCTIVAL PALLOR [None]
  - PSEUDOMONAL SEPSIS [None]
  - LIVER FUNCTION TEST ABNORMAL [None]
  - ASPARTATE AMINOTRANSFERASE INCREASED [None]
